FAERS Safety Report 8030403-8 (Version None)
Quarter: 2012Q1

REPORT INFORMATION
  Report Type: 
  Country: None (occurrence: None)
  Receive Date: 20120109
  Receipt Date: 20120109
  Transmission Date: 20120608
  Serious: Yes (Other)
  Sender: FDA-Public Use
  Company Number: None

PATIENT
  Age: 50 Year
  Sex: Female
  Weight: 49.441 kg

DRUGS (1)
  1. SCOPOLAMINE [Suspect]
     Indication: PROPHYLAXIS AGAINST MOTION SICKNESS
     Dosage: 1 PATCH
     Route: 062
     Dates: start: 20111224, end: 20111229

REACTIONS (2)
  - VISION BLURRED [None]
  - DRY MOUTH [None]
